FAERS Safety Report 4651467-5 (Version None)
Quarter: 2005Q2

REPORT INFORMATION
  Report Type: 
  Country: None (occurrence: None)
  Receive Date: 20050502
  Receipt Date: 20050419
  Transmission Date: 20051028
  Serious: Yes (Other)
  Sender: FDA-Public Use
  Company Number: 2005062949

PATIENT
  Sex: Female
  Weight: 99.7913 kg

DRUGS (4)
  1. BEXTRA [Suspect]
     Indication: ARTHRITIS
     Dosage: 20 MG (20 MG, 1 IN 1 D)
     Dates: start: 20040101, end: 20040101
  2. MICRONASE [Suspect]
     Indication: ILL-DEFINED DISORDER
  3. ALL OTHER THERAPEUTIC PRODUCTS (ALL OTEHR THERAPEUTIC PRODUCTS) [Concomitant]
  4. ASPIRIN [Concomitant]

REACTIONS (7)
  - ERYTHEMA [None]
  - INSOMNIA [None]
  - OEDEMA MOUTH [None]
  - ORAL PAIN [None]
  - RASH [None]
  - SKIN DISORDER [None]
  - WEIGHT INCREASED [None]
